FAERS Safety Report 4519947-0 (Version None)
Quarter: 2004Q4

REPORT INFORMATION
  Report Type: 
  Country: None (occurrence: None)
  Receive Date: 20041202
  Receipt Date: 20041202
  Transmission Date: 20050328
  Serious: No
  Sender: FDA-Public Use
  Company Number: None

PATIENT
  Sex: Female
  Weight: 90.7194 kg

DRUGS (1)
  1. ORTHO EVRA [Suspect]
     Indication: CONTRACEPTION
     Dosage: 1 PATCH  ONCE A WEEK  EPIDURAL
     Route: 008
     Dates: start: 20030204, end: 20041105

REACTIONS (2)
  - BENIGN INTRACRANIAL HYPERTENSION [None]
  - UNEVALUABLE EVENT [None]
